FAERS Safety Report 23020395 (Version 1)
Quarter: 2023Q4

REPORT INFORMATION
  Report Type: Spontaneous
  Country: TR (occurrence: TR)
  Receive Date: 20231003
  Receipt Date: 20231003
  Transmission Date: 20240110
  Serious: Yes (Other)
  Sender: FDA-Public Use
  Company Number: TR-PFIZER INC-202300312990

PATIENT
  Age: 21 Year
  Sex: Female

DRUGS (3)
  1. LORAZEPAM [Suspect]
     Active Substance: LORAZEPAM
     Indication: Agitation
     Dosage: 5 MG, DAILY
  2. VALPROATE [Suspect]
     Active Substance: VALPROIC ACID
     Indication: Mood swings
     Dosage: 1500 MG, DAILY
  3. LITHIUM [Concomitant]
     Active Substance: LITHIUM
     Indication: Mood swings
     Dosage: 900 MG, DAILY

REACTIONS (1)
  - Hyperammonaemic encephalopathy [Recovered/Resolved]
